FAERS Safety Report 20751874 (Version 2)
Quarter: 2022Q2

REPORT INFORMATION
  Report Type: Spontaneous
  Country: US (occurrence: US)
  Receive Date: 20220426
  Receipt Date: 20220512
  Transmission Date: 20220720
  Serious: Yes (Hospitalization)
  Sender: FDA-Public Use
  Company Number: US-LUNDBECK-DKLU3047232

PATIENT
  Age: 3 Month
  Sex: Female
  Weight: 5 kg

DRUGS (16)
  1. SABRIL [Suspect]
     Active Substance: VIGABATRIN
     Indication: Tuberous sclerosis complex
     Route: 048
     Dates: start: 20220208
  2. SABRIL [Suspect]
     Active Substance: VIGABATRIN
     Route: 048
     Dates: start: 20220411
  3. SABRIL [Suspect]
     Active Substance: VIGABATRIN
     Route: 048
     Dates: start: 20220411
  4. TYLENOL [Concomitant]
     Active Substance: ACETAMINOPHEN
     Indication: Pyrexia
     Route: 048
  5. TYLENOL [Concomitant]
     Active Substance: ACETAMINOPHEN
     Indication: Pain
  6. CAPOTEN [Concomitant]
     Active Substance: CAPTOPRIL
     Indication: Rhabdomyoma
     Route: 048
  7. CAPOTEN [Concomitant]
     Active Substance: CAPTOPRIL
     Indication: Systolic dysfunction
  8. D-VI-SOL [Concomitant]
     Indication: Term birth
     Route: 048
  9. LASIX [Concomitant]
     Active Substance: FUROSEMIDE
     Indication: Rhabdomyoma
     Route: 048
  10. LASIX [Concomitant]
     Active Substance: FUROSEMIDE
     Indication: Systolic dysfunction
  11. MYCOSTATIN [Concomitant]
     Active Substance: NYSTATIN
     Indication: Intertrigo
     Dosage: APPLY TO UNDERARM RASH UNTIL CLEAR THEN AS NEEDED
     Route: 061
  12. SIMETHICONE (DIMETHICONE) [Concomitant]
     Active Substance: DIMETHICONE
     Indication: Surgery
  13. SIMETHICONE (DIMETHICONE) [Concomitant]
     Active Substance: DIMETHICONE
     Indication: Flatulence
  14. SIMETHICONE (DIMETHICONE) [Concomitant]
     Active Substance: DIMETHICONE
     Indication: Abdominal pain upper
  15. CAROSPIR [Concomitant]
     Active Substance: SPIRONOLACTONE
     Indication: Rhabdomyoma
     Route: 048
  16. CAROSPIR [Concomitant]
     Active Substance: SPIRONOLACTONE
     Indication: Systolic dysfunction

REACTIONS (3)
  - Drug withdrawal convulsions [Recovered/Resolved]
  - Constipation [Recovered/Resolved]
  - Product dose omission issue [Recovered/Resolved]

NARRATIVE: CASE EVENT DATE: 20220416
